FAERS Safety Report 11936197 (Version 2)
Quarter: 2016Q1

REPORT INFORMATION
  Report Type: Report from Study
  Country: US (occurrence: US)
  Receive Date: 20160121
  Receipt Date: 20160212
  Transmission Date: 20160526
  Serious: Yes (Death, Other)
  Sender: FDA-Public Use
  Company Number: US-AMGEN-USASL2015121620

PATIENT
  Age: 72 Year
  Sex: Female

DRUGS (2)
  1. KYPROLIS [Suspect]
     Active Substance: CARFILZOMIB
     Indication: PRODUCT USED FOR UNKNOWN INDICATION
     Dosage: UNK
     Route: 065
  2. ARANESP [Suspect]
     Active Substance: DARBEPOETIN ALFA
     Indication: PRODUCT USED FOR UNKNOWN INDICATION
     Dosage: UNK UNK, UNK
     Route: 065

REACTIONS (16)
  - Death [Fatal]
  - Fluid retention [Unknown]
  - Walking aid user [Unknown]
  - Asthma [Not Recovered/Not Resolved]
  - Haemoglobin abnormal [Not Recovered/Not Resolved]
  - Pneumonia [Unknown]
  - Grip strength decreased [Not Recovered/Not Resolved]
  - Renal disorder [Not Recovered/Not Resolved]
  - Pain in extremity [Unknown]
  - Mobility decreased [Unknown]
  - Skin exfoliation [Unknown]
  - Blood creatinine increased [Not Recovered/Not Resolved]
  - Diarrhoea [Unknown]
  - Blood potassium increased [Not Recovered/Not Resolved]
  - Fatigue [Unknown]
  - Dyspnoea [Not Recovered/Not Resolved]

NARRATIVE: CASE EVENT DATE: 201511
